FAERS Safety Report 16885307 (Version 1)
Quarter: 2019Q4

REPORT INFORMATION
  Report Type: Report from Study
  Country: None (occurrence: UY)
  Receive Date: 20191004
  Receipt Date: 20191004
  Transmission Date: 20200122
  Serious: Yes (Other)
  Sender: FDA-Public Use
  Company Number: UY-ABBVIE-19K-168-2947489-00

PATIENT
  Age: 15 Year
  Sex: Male

DRUGS (1)
  1. HUMIRA [Suspect]
     Active Substance: ADALIMUMAB
     Indication: JUVENILE IDIOPATHIC ARTHRITIS
     Route: 058
     Dates: start: 20131007

REACTIONS (1)
  - Uveitis [Not Recovered/Not Resolved]

NARRATIVE: CASE EVENT DATE: 20190905
